FAERS Safety Report 12669439 (Version 1)
Quarter: 2016Q3

REPORT INFORMATION
  Report Type: Spontaneous
  Country: CN (occurrence: CN)
  Receive Date: 20160819
  Receipt Date: 20160819
  Transmission Date: 20161109
  Serious: Yes (Hospitalization)
  Sender: FDA-Public Use
  Company Number: CN-PFIZER INC-2016390433

PATIENT
  Age: 70 Year
  Sex: Male
  Weight: 69 kg

DRUGS (8)
  1. LOTENSIN [Suspect]
     Active Substance: BENAZEPRIL HYDROCHLORIDE
     Indication: HYPERTENSION
     Dosage: 10 MG, DAILY
     Route: 048
     Dates: start: 20160616, end: 20160621
  2. LIPITOR [Concomitant]
     Active Substance: ATORVASTATIN CALCIUM
     Indication: LIPIDS
     Dosage: 10 MG, DAILY
     Route: 048
     Dates: start: 20160615, end: 20160622
  3. NORVASC [Concomitant]
     Active Substance: AMLODIPINE BESYLATE
     Indication: HYPERTENSION
     Dosage: 5 MG, DAILY
     Dates: start: 20160615, end: 20160617
  4. CELEBREX [Suspect]
     Active Substance: CELECOXIB
     Indication: ANALGESIC THERAPY
     Dosage: 0.2 G, 2X/DAY
     Route: 048
     Dates: start: 20160614, end: 20160621
  5. METHYCOBAL [Suspect]
     Active Substance: METHYLCOBALAMIN
     Indication: NERVE INJURY
     Dosage: 0.5 MG, 3X/DAY
     Route: 048
     Dates: start: 20160614, end: 20160621
  6. ORYZANOL [Suspect]
     Active Substance: GAMMA ORYZANOL
     Indication: NEUROSIS
     Dosage: 10 MG, 3X/DAY
     Route: 048
     Dates: start: 20160614, end: 20160621
  7. NORVASC [Concomitant]
     Active Substance: AMLODIPINE BESYLATE
     Dosage: 10 MG, DAILY
     Dates: start: 20160618, end: 20160622
  8. ASPIRIN BAYER [Suspect]
     Active Substance: ASPIRIN
     Indication: HYPERTENSION
     Dosage: 100 MG, DAILY
     Route: 048
     Dates: start: 20160615, end: 20160621

REACTIONS (5)
  - Rash [Recovering/Resolving]
  - Dry mouth [Recovering/Resolving]
  - Periorbital oedema [Recovering/Resolving]
  - Pruritus [Recovering/Resolving]
  - Urticaria [Recovering/Resolving]

NARRATIVE: CASE EVENT DATE: 20160621
